FAERS Safety Report 18442445 (Version 1)
Quarter: 2020Q4

REPORT INFORMATION
  Report Type: Spontaneous
  Country: SI (occurrence: SI)
  Receive Date: 20201029
  Receipt Date: 20201029
  Transmission Date: 20210114
  Serious: Yes (Other)
  Sender: FDA-Public Use
  Company Number: SI-US-PROVELL PHARMACEUTICALS LLC-9194995

PATIENT
  Age: 73 Year

DRUGS (1)
  1. EUTHYROX [Suspect]
     Active Substance: LEVOTHYROXINE SODIUM
     Indication: HYPOTHYROIDISM

REACTIONS (8)
  - Neuropathy peripheral [Unknown]
  - Cardiac disorder [Unknown]
  - Lung disorder [Unknown]
  - Weight increased [Unknown]
  - Arthropathy [Unknown]
  - Hepatic function abnormal [Unknown]
  - Gastric cancer [Unknown]
  - Visual impairment [Unknown]
